FAERS Safety Report 15023660 (Version 1)
Quarter: 2018Q2

REPORT INFORMATION
  Report Type: Report from Study
  Country: ES (occurrence: ES)
  Receive Date: 20180618
  Receipt Date: 20180618
  Transmission Date: 20180711
  Serious: Yes (Hospitalization)
  Sender: FDA-Public Use
  Company Number: ES-TEVA-2018-ES-908983

PATIENT
  Age: 70 Year
  Sex: Female

DRUGS (5)
  1. METAMIZOL (111A) [Concomitant]
     Active Substance: METAMIZOL SODIUM
     Dosage: 2GR/8H
     Route: 042
     Dates: start: 20170707
  2. ATORVASTATIN CALCIUM. [Suspect]
     Active Substance: ATORVASTATIN CALCIUM
     Dosage: 80 MILLIGRAM DAILY; 80MG DIA
     Route: 048
     Dates: start: 20170117, end: 20170710
  3. TIAMAZOL (1951A) [Concomitant]
     Dosage: 5 MILLIGRAM DAILY; 5MG DIA
     Route: 048
     Dates: start: 2015
  4. PARACETAMOL (12A) [Concomitant]
     Active Substance: ACETAMINOPHEN
     Dosage: 1GR/8H
     Route: 042
     Dates: start: 20170704
  5. PANTOPRAZOL (7275A) [Concomitant]
     Active Substance: PANTOPRAZOLE
     Dosage: 40 MILLIGRAM DAILY; 40 MG DIA
     Route: 042
     Dates: start: 20170704

REACTIONS (1)
  - Hepatitis acute [Recovered/Resolved]

NARRATIVE: CASE EVENT DATE: 20170710
